FAERS Safety Report 6499783-9 (Version None)
Quarter: 2009Q4

REPORT INFORMATION
  Report Type: 
  Country: None (occurrence: None)
  Receive Date: 20091214
  Receipt Date: 20091204
  Transmission Date: 20100525
  Serious: Yes (Other)
  Sender: FDA-Public Use
  Company Number: CERZ-1001069

PATIENT
  Age: 17 Year
  Sex: Female

DRUGS (1)
  1. CEREZYME [Suspect]
     Indication: GAUCHER'S DISEASE
     Dosage: 2400 U, Q2W, INTRAVENOUS
     Route: 042
     Dates: start: 19440101

REACTIONS (10)
  - EATING DISORDER [None]
  - FALL [None]
  - HEADACHE [None]
  - LIMB INJURY [None]
  - LOSS OF CONSCIOUSNESS [None]
  - MOUTH INJURY [None]
  - SKIN LACERATION [None]
  - TONGUE INJURY [None]
  - WEIGHT DECREASED [None]
  - WOUND INFECTION [None]
